FAERS Safety Report 4320658-5 (Version None)
Quarter: 2004Q1

REPORT INFORMATION
  Report Type: 
  Country: None (occurrence: None)
  Receive Date: 20040316
  Receipt Date: 20040301
  Transmission Date: 20041129
  Serious: Yes (Other)
  Sender: FDA-Public Use
  Company Number: 601121

PATIENT
  Age: 14 Year
  Sex: Male

DRUGS (4)
  1. HEMOFIL M [Suspect]
     Indication: FACTOR VIII DEFICIENCY
     Dosage: 2000 UNITS; TIW; INTRAVENOUS
     Route: 042
     Dates: start: 19950101, end: 20040204
  2. ALBUTEROL SULFATE [Concomitant]
  3. VIANI [Concomitant]
  4. SINGULAIR ^DIECKMANN^ [Concomitant]

REACTIONS (3)
  - COAGULATION FACTOR VIII LEVEL ABNORMAL [None]
  - HAEMORRHAGE [None]
  - PAIN IN EXTREMITY [None]
